FAERS Safety Report 10227164 (Version 1)
Quarter: 2014Q2

REPORT INFORMATION
  Report Type: Spontaneous
  Country: US (occurrence: US)
  Receive Date: 20140610
  Receipt Date: 20140610
  Transmission Date: 20141212
  Serious: No
  Sender: FDA-Public Use
  Company Number: US-B.I. PHARMACEUTICALS,INC./RIDGEFIELD-2014-BI-24070BP

PATIENT
  Sex: Female

DRUGS (2)
  1. COMBIVENT [Suspect]
     Indication: TRAUMATIC LUNG INJURY
     Dosage: FORMULATION: INHALATION AEROSOL; STRENGTH: 18 MCG / 103 MCG; DAILY DOSE: 144 MCG / 824 MCG
     Route: 055
     Dates: start: 2006
  2. COMBIVENT [Suspect]
     Indication: CHEMOTHERAPY

REACTIONS (1)
  - Off label use [Not Recovered/Not Resolved]
